FAERS Safety Report 8846510 (Version 19)
Quarter: 2014Q1

REPORT INFORMATION
  Report Type: Report from Study
  Country: CA (occurrence: CA)
  Receive Date: 20121017
  Receipt Date: 20140129
  Transmission Date: 20141002
  Serious: Yes (Hospitalization, Other)
  Sender: FDA-Public Use
  Company Number: CA-ROCHE-1135215

PATIENT
  Age: 49 Year
  Sex: Female
  Weight: 87 kg

DRUGS (19)
  1. ACTEMRA [Suspect]
     Indication: RHEUMATOID ARTHRITIS
     Dosage: DOSE 8 MG/KG
     Route: 042
     Dates: start: 20120917
  2. ACTEMRA [Suspect]
     Route: 042
     Dates: start: 20121001
  3. ACTEMRA [Suspect]
     Route: 042
     Dates: start: 20121211
  4. ACTEMRA [Suspect]
     Route: 042
     Dates: start: 20130524
  5. IMURAN [Suspect]
     Indication: DRUG EFFECT DECREASED
     Route: 065
     Dates: start: 20130424, end: 2013
  6. PREDNISONE [Suspect]
     Indication: RHEUMATOID ARTHRITIS
     Route: 048
     Dates: start: 2007, end: 2013
  7. CODEINE [Suspect]
     Indication: PRODUCT USED FOR UNKNOWN INDICATION
     Route: 065
  8. AZATHIOPRINE [Suspect]
     Indication: PRODUCT USED FOR UNKNOWN INDICATION
     Route: 048
     Dates: end: 2013
  9. VITAMIN B6 [Concomitant]
  10. VITAMIN B12 [Concomitant]
  11. FOLIC ACID [Concomitant]
  12. CIPRALEX [Concomitant]
  13. PREMARIN [Concomitant]
  14. METFORMIN [Concomitant]
  15. RAMIPRIL [Concomitant]
  16. ARAVA [Concomitant]
  17. ROSUVASTATIN [Concomitant]
  18. METHOTREXATE [Concomitant]
  19. NEXIUM [Concomitant]

REACTIONS (39)
  - Dehydration [Recovered/Resolved]
  - Vomiting [Unknown]
  - Diarrhoea [Unknown]
  - Pneumonia [Unknown]
  - Diabetes mellitus [Unknown]
  - Rheumatoid arthritis [Not Recovered/Not Resolved]
  - Joint injury [Not Recovered/Not Resolved]
  - Eye haemorrhage [Not Recovered/Not Resolved]
  - Visual impairment [Not Recovered/Not Resolved]
  - Nerve injury [Unknown]
  - Herpes zoster [Recovered/Resolved]
  - Joint swelling [Not Recovered/Not Resolved]
  - Muscular weakness [Not Recovered/Not Resolved]
  - Injection site pain [Recovered/Resolved]
  - Abdominal pain lower [Recovered/Resolved]
  - Nausea [Recovered/Resolved]
  - Drug effect decreased [Unknown]
  - Arthropod bite [Not Recovered/Not Resolved]
  - Rash [Recovering/Resolving]
  - Muscle disorder [Unknown]
  - Musculoskeletal discomfort [Unknown]
  - Nervous system disorder [Unknown]
  - Rheumatoid arthritis [Unknown]
  - Hypersensitivity [Unknown]
  - Gastric disorder [Unknown]
  - Hypertension [Unknown]
  - Eye disorder [Unknown]
  - Sleep disorder [Unknown]
  - Arthropathy [Unknown]
  - Pain [Unknown]
  - Urticaria [Unknown]
  - Cough [Recovered/Resolved]
  - Back pain [Unknown]
  - Paraesthesia [Unknown]
  - Joint injury [Recovering/Resolving]
  - Limb injury [Recovering/Resolving]
  - Back injury [Recovering/Resolving]
  - Headache [Not Recovered/Not Resolved]
  - Weight increased [Not Recovered/Not Resolved]
